FAERS Safety Report 5044798-0 (Version None)
Quarter: 2006Q2

REPORT INFORMATION
  Report Type: 
  Country: None (occurrence: None)
  Receive Date: 20060601
  Receipt Date: 20060202
  Transmission Date: 20061013
  Serious: No
  Sender: FDA-Public Use
  Company Number: 2006-BP-00470BP(1)

PATIENT
  Sex: Male

DRUGS (7)
  1. SPIRIVA [Suspect]
     Indication: EMPHYSEMA
     Dosage: 18 MCG (18 MCG), IH
     Route: 055
     Dates: start: 20051201
  2. FLORADIL [Concomitant]
  3. OXYCODONE (OXYCODONE) [Concomitant]
  4. LIPITOR [Concomitant]
  5. ATENOLOL [Concomitant]
  6. COZAAR [Concomitant]
  7. BACLOFEN [Concomitant]

REACTIONS (1)
  - DRUG INEFFECTIVE [None]
